FAERS Safety Report 21302930 (Version 2)
Quarter: 2022Q3

REPORT INFORMATION
  Report Type: Report from Study
  Country: US (occurrence: None)
  Receive Date: 20220907
  Receipt Date: 20220916
  Transmission Date: 20221027
  Serious: Yes (Life-Threatening, Hospitalization, Other)
  Sender: FDA-Public Use
  Company Number: US-Merck Healthcare KGaA-9348655

PATIENT
  Age: 61 Year
  Sex: Male
  Weight: 115 kg

DRUGS (2)
  1. MAVENCLAD [Suspect]
     Active Substance: CLADRIBINE
     Indication: Multiple sclerosis
     Dosage: YEAR ONE MONTH ONE THERAPY
     Route: 048
     Dates: start: 20210423
  2. MAVENCLAD [Suspect]
     Active Substance: CLADRIBINE
     Dosage: YEAR ONE MONTH TWO THERAPY
     Route: 048
     Dates: end: 20210528

REACTIONS (9)
  - Staphylococcal bacteraemia [Recovering/Resolving]
  - Epidural injection [Unknown]
  - Diabetes mellitus [Unknown]
  - Skin ulcer [Unknown]
  - Hypoxia [Unknown]
  - Knee arthroplasty [Recovering/Resolving]
  - Post procedural sepsis [Unknown]
  - Osteoarthritis [Recovering/Resolving]
  - Arthritis bacterial [Recovering/Resolving]

NARRATIVE: CASE EVENT DATE: 20220801
